FAERS Safety Report 19929432 (Version 1)
Quarter: 2021Q4

REPORT INFORMATION
  Report Type: Other
  Country: CA (occurrence: CA)
  Receive Date: 20211007
  Receipt Date: 20211007
  Transmission Date: 20220304
  Serious: Yes (Hospitalization)
  Sender: FDA-Public Use
  Company Number: CA-PFIZER INC-202101299947

PATIENT
  Age: 45 Year
  Sex: Female

DRUGS (2)
  1. METHYLPREDNISOLONE SODIUM SUCCINATE [Suspect]
     Active Substance: METHYLPREDNISOLONE SODIUM SUCCINATE
     Indication: Concentric sclerosis
     Dosage: 1 G, 1X/DAY
     Route: 042
  2. NATALIZUMAB [Suspect]
     Active Substance: NATALIZUMAB
     Indication: Concentric sclerosis
     Dosage: 300 MG, MONTHLY (1 EVERY 4 WEEKS)
     Route: 042

REACTIONS (4)
  - B-cell lymphoma [Unknown]
  - Central nervous system lymphoma [Unknown]
  - Epstein-Barr virus associated lymphoma [Unknown]
  - Non-Hodgkin^s lymphoma [Unknown]
